FAERS Safety Report 24783889 (Version 1)
Quarter: 2024Q4

REPORT INFORMATION
  Report Type: Spontaneous
  Country: US (occurrence: None)
  Receive Date: 20241221
  Receipt Date: 20241221
  Transmission Date: 20250115
  Serious: Yes (Life-Threatening, Hospitalization, Disabling, Congenital Anomaly)
  Sender: Public
  Company Number: None

PATIENT

DRUGS (1)
  1. VIVITROL [Suspect]
     Active Substance: NALTREXONE

REACTIONS (4)
  - Depression [None]
  - Hypophagia [None]
  - Suicidal ideation [None]
  - Fluid intake reduced [None]

NARRATIVE: CASE EVENT DATE: 20241202
